FAERS Safety Report 11387710 (Version 1)
Quarter: 2015Q3

REPORT INFORMATION
  Report Type: Other
  Country: GB (occurrence: GB)
  Receive Date: 20150817
  Receipt Date: 20150817
  Transmission Date: 20151125
  Serious: Yes (Hospitalization)
  Sender: FDA-Public Use
  Company Number: GB-MYLANLABS-2015M1026542

PATIENT

DRUGS (7)
  1. AMLODIPINE [Suspect]
     Active Substance: AMLODIPINE BESYLATE
     Indication: HYPERTENSION
     Dosage: UNK
  2. METHOTREXATE [Concomitant]
     Active Substance: METHOTREXATE
  3. BENDROFLUMETHIAZIDE [Concomitant]
     Active Substance: BENDROFLUMETHIAZIDE
     Dosage: UNK
  4. FOLIC ACID. [Concomitant]
     Active Substance: FOLIC ACID
     Dosage: UNK
  5. DICLOFENAC [Suspect]
     Active Substance: DICLOFENAC
     Dosage: UNK
  6. LOSARTAN. [Suspect]
     Active Substance: LOSARTAN
     Indication: HYPERTENSION
     Dosage: UNK
  7. ATENOLOL. [Suspect]
     Active Substance: ATENOLOL
     Indication: HYPERTENSION
     Dosage: 100 MG, QD (IN THE MORNING.)
     Route: 048
     Dates: start: 2007, end: 20150721

REACTIONS (4)
  - Bradycardia [Recovered/Resolved]
  - Wheezing [Recovering/Resolving]
  - Bronchospasm [Recovering/Resolving]
  - Hypotension [Recovering/Resolving]

NARRATIVE: CASE EVENT DATE: 20150721
